FAERS Safety Report 10200296 (Version 1)
Quarter: 2014Q2

REPORT INFORMATION
  Report Type: Spontaneous
  Country: JP (occurrence: JP)
  Receive Date: 20140527
  Receipt Date: 20140527
  Transmission Date: 20141212
  Serious: Yes (Hospitalization, Other)
  Sender: FDA-Public Use
  Company Number: JP-UCBSA-122159

PATIENT
  Age: 76 Year
  Sex: Male

DRUGS (7)
  1. NEUPRO [Suspect]
     Indication: PARKINSON^S DISEASE
     Route: 062
     Dates: start: 20140320
  2. IFENPRODIL TARTRATE [Concomitant]
     Dosage: 30MG DAILY
     Dates: start: 20130705
  3. PIROHEPTINE HYDROCHLORIDE [Concomitant]
     Dosage: 6MG DAILY
     Dates: start: 201307
  4. TRIHEXYPHENIDYL HYDROCHLORIDE [Concomitant]
     Dosage: 6MG DAILY
     Dates: start: 201307
  5. AMANTADINE HYDROCHLORIDE [Concomitant]
     Dates: start: 201307
  6. TOCOPHEROL ACETATE [Concomitant]
     Dates: start: 201307
  7. HALOPERIDOL [Concomitant]
     Dosage: 0.25 (UNSPECIFIED UNITS) DAILY
     Dates: start: 201307

REACTIONS (1)
  - Hepatic function abnormal [Unknown]
